FAERS Safety Report 7690021-8 (Version None)
Quarter: 2011Q3

REPORT INFORMATION
  Report Type: 
  Country: None (occurrence: None)
  Receive Date: 20110818
  Receipt Date: 20110804
  Transmission Date: 20111222
  Serious: Yes (Other)
  Sender: FDA-Public Use
  Company Number: PL-RANBAXY-2011RR-46424

PATIENT
  Age: 13 Year
  Sex: Male

DRUGS (2)
  1. CLARITHROMYCIN [Suspect]
     Indication: PYREXIA
  2. CLARITHROMYCIN [Suspect]
     Indication: BRONCHITIS
     Dosage: 250 MG, BID
     Route: 048

REACTIONS (2)
  - HYPERSOMNIA [None]
  - PYREXIA [None]
